FAERS Safety Report 23101518 (Version 1)
Quarter: 2023Q4

REPORT INFORMATION
  Report Type: Spontaneous
  Country: CN (occurrence: CN)
  Receive Date: 20231024
  Receipt Date: 20231024
  Transmission Date: 20240109
  Serious: Yes (Other)
  Sender: FDA-Public Use
  Company Number: None

PATIENT
  Age: 81 Year
  Sex: Male

DRUGS (2)
  1. CYCLOPHOSPHAMIDE [Suspect]
     Active Substance: CYCLOPHOSPHAMIDE
     Indication: Lymphoma
     Dosage: 0.2 G, ONCE, ROUTE: MICROPUMP INTRAVENOUS INJECTION, DILUTED WITH 40 ML OF 0.9% SODIUM CHLORIDE
     Route: 050
     Dates: start: 20231014, end: 20231014
  2. SODIUM CHLORIDE [Suspect]
     Active Substance: SODIUM CHLORIDE
     Indication: Medication dilution
     Dosage: 40 ML, ONCE, ROUTE: MICROPUMP INTRAVENOUS INJECTION, USED TO DILUTE 0.2 G OF CYCLOPHOSPHAMIDE, DOSAG
     Route: 050
     Dates: start: 20231014, end: 20231014

REACTIONS (2)
  - Cystitis haemorrhagic [Recovering/Resolving]
  - Haematuria [Recovering/Resolving]

NARRATIVE: CASE EVENT DATE: 20231016
